FAERS Safety Report 10240513 (Version 1)
Quarter: 2014Q2

REPORT INFORMATION
  Report Type: Spontaneous
  Country: DE (occurrence: DE)
  Receive Date: 20140617
  Receipt Date: 20140617
  Transmission Date: 20141212
  Serious: Yes (Other)
  Sender: FDA-Public Use
  Company Number: DE-009507513-1406DEU007012

PATIENT
  Sex: Male
  Weight: 91 kg

DRUGS (8)
  1. JANUMET [Suspect]
     Indication: TYPE 2 DIABETES MELLITUS
     Dosage: 2 X 1
     Route: 048
  2. EDARBI [Suspect]
     Indication: HYPERTENSION
     Dosage: DAILY DOSE: 80 MG EVERY DAYS (80 MG, 1 IN 1 DAY)
     Route: 048
     Dates: start: 2011
  3. CRESTOR [Suspect]
     Indication: ARTERIOSCLEROSIS
     Dosage: DAILY DOSE: 5 MG ORAL MILIGRAMS(S) EVERY DAYS
     Route: 048
     Dates: start: 2010
  4. BISOPROLOL [Concomitant]
     Indication: ARRHYTHMIA
     Dosage: DAILY DOSE: 5 MG MG EVERY DAYS/ 5 MG 1 A 1DAY
     Route: 048
     Dates: start: 2011
  5. AMLODIPINE [Concomitant]
     Indication: HYPERTENSION
     Dosage: DAILY DOSE: 5 MG EVERY DAYS/5 MG 1 A 1DAY
     Route: 048
     Dates: start: 2010
  6. HYDROCHLOROTHIAZIDE [Concomitant]
     Dosage: 12.5 MG
     Route: 048
  7. ASS 100 [Concomitant]
     Dosage: 100 MG
     Route: 048
  8. PACLITAXEL [Concomitant]
     Dosage: UNK
     Dates: start: 2013

REACTIONS (3)
  - Hyperadrenalism [Unknown]
  - Hypotonia [Unknown]
  - Musculoskeletal discomfort [Unknown]
